FAERS Safety Report 7075504-6 (Version None)
Quarter: 2010Q4

REPORT INFORMATION
  Report Type: 
  Country: None (occurrence: None)
  Receive Date: 20101030
  Receipt Date: 20100920
  Transmission Date: 20110411
  Serious: No
  Sender: FDA-Public Use
  Company Number: US-WYE-H17672410

PATIENT
  Sex: Male
  Weight: 77.18 kg

DRUGS (2)
  1. PRISTIQ [Suspect]
     Indication: PAIN IN EXTREMITY
     Dates: start: 20100701
  2. PRISTIQ [Suspect]
     Indication: DEPRESSION

REACTIONS (1)
  - BLOOD TRIGLYCERIDES INCREASED [None]
